FAERS Safety Report 9352733 (Version 1)
Quarter: 2013Q2

REPORT INFORMATION
  Report Type: Spontaneous
  Country: US (occurrence: None)
  Receive Date: 20130614
  Receipt Date: 20130614
  Transmission Date: 20140414
  Serious: No
  Sender: FDA-Public Use
  Company Number: None

PATIENT
  Age: 54 Year
  Sex: Male
  Weight: 76.8 kg

DRUGS (4)
  1. BEVACIZIUMAB [Suspect]
  2. LEUCOVORIN CALCIUM [Suspect]
  3. OXALIPLATIN (ELOXATIN) [Suspect]
  4. 5-FLUOROURACIL (5-FU) [Suspect]

REACTIONS (1)
  - Hypertension [None]
